APPROVED DRUG PRODUCT: PROPRANOLOL HYDROCHLORIDE
Active Ingredient: PROPRANOLOL HYDROCHLORIDE
Strength: 1MG/ML
Dosage Form/Route: INJECTABLE;INJECTION
Application: A077760 | Product #001 | TE Code: AP
Applicant: HIKMA FARMACEUTICA (PORTUGAL) SA
Approved: Jan 31, 2008 | RLD: No | RS: Yes | Type: RX